FAERS Safety Report 17855687 (Version 3)
Quarter: 2024Q3

REPORT INFORMATION
  Report Type: Spontaneous
  Country: US (occurrence: US)
  Receive Date: 20200603
  Receipt Date: 20240902
  Transmission Date: 20241017
  Serious: Yes (Other)
  Sender: PFIZER
  Company Number: US-PFIZER INC-2019289841

PATIENT
  Age: 72 Year
  Sex: Female
  Weight: 70.03 kg

DRUGS (7)
  1. IBRANCE [Suspect]
     Active Substance: PALBOCICLIB
     Indication: Breast cancer female
     Dosage: 125 MG, CYCLIC (IN THE AM WITH BREAKFAST, 21 DAYS PER PACKAGE)
     Dates: start: 2016, end: 20210211
  2. ZYRTEC [Concomitant]
     Active Substance: CETIRIZINE HYDROCHLORIDE
     Indication: Hypersensitivity
     Dosage: UNK
  3. B50 [Concomitant]
     Dosage: UNK
  4. PRIMROSE [Concomitant]
     Dosage: UNK
  5. ALPHA LIPOIC ACID [Concomitant]
     Active Substance: .ALPHA.-LIPOIC ACID
     Indication: Neuropathy peripheral
     Dosage: UNK
  6. LETROZOLE [Concomitant]
     Active Substance: LETROZOLE
     Dosage: 2.5 MG, 1X/DAY
     Dates: start: 2017
  7. FASLODEX [Concomitant]
     Active Substance: FULVESTRANT
     Dosage: A BIG SHOT ONE IN EACH HIP MONTHLY
     Dates: end: 2017

REACTIONS (1)
  - Cataract [Unknown]

NARRATIVE: CASE EVENT DATE: 20201201
